FAERS Safety Report 4457205-3 (Version None)
Quarter: 2004Q3

REPORT INFORMATION
  Report Type: 
  Country: None (occurrence: None)
  Receive Date: 20040922
  Receipt Date: 20040907
  Transmission Date: 20050211
  Serious: Yes (Other)
  Sender: FDA-Public Use
  Company Number: 200408128

PATIENT
  Age: 77 Year
  Sex: Male

DRUGS (3)
  1. BRIMONIDINE TARTRATE [Suspect]
     Indication: OPEN ANGLE GLAUCOMA
  2. LOTEPREDNOL ETABONATE [Concomitant]
  3. FLUOROMETHOLONE [Concomitant]

REACTIONS (2)
  - CONJUNCTIVITIS ALLERGIC [None]
  - IRIDOCYCLITIS [None]
